FAERS Safety Report 6803454-6 (Version None)
Quarter: 2010Q2

REPORT INFORMATION
  Report Type: 
  Country: None (occurrence: None)
  Receive Date: 20100628
  Receipt Date: 20100622
  Transmission Date: 20101027
  Serious: Yes (Hospitalization, Other)
  Sender: FDA-Public Use
  Company Number: BR-ROCHE-710959

PATIENT
  Age: 15 Year
  Sex: Female

DRUGS (2)
  1. CLONAZEPAM [Suspect]
     Indication: SEDATIVE THERAPY
     Route: 048
     Dates: start: 20100620, end: 20100620
  2. CARBAMAZEPINE [Suspect]
     Indication: SEDATIVE THERAPY
     Route: 048
     Dates: start: 20100620, end: 20100620

REACTIONS (3)
  - DRUG TOXICITY [None]
  - OVERDOSE [None]
  - SEDATIVE THERAPY [None]
